FAERS Safety Report 18293803 (Version 1)
Quarter: 2020Q3

REPORT INFORMATION
  Report Type: Report from Study
  Country: None (occurrence: HU)
  Receive Date: 20200922
  Receipt Date: 20200922
  Transmission Date: 20201103
  Serious: Yes (Hospitalization)
  Sender: FDA-Public Use
  Company Number: HU-ABBVIE-20K-076-3574420-00

PATIENT
  Age: 76 Year
  Sex: Male

DRUGS (6)
  1. EXELON [Concomitant]
     Active Substance: RIVASTIGMINE TARTRATE
     Indication: HALLUCINATION
     Dosage: 4.6 MG / 24 HOURS
     Route: 062
     Dates: start: 201606
  2. NOACID [Concomitant]
     Indication: PROPHYLAXIS
     Route: 048
     Dates: start: 201311
  3. DUODOPA [Suspect]
     Active Substance: CARBIDOPA\LEVODOPA
     Indication: PARKINSON^S DISEASE
     Dosage: MORNING DOSE: 7.7. ML; CONTINUOUS DOSE: 4.2 ML/HOUR; EXTRA DOSE: 1.5 ML
     Route: 050
     Dates: start: 201311
  4. CORBILTA [Concomitant]
     Active Substance: CARBIDOPA\ENTACAPONE\LEVODOPA
     Indication: PARKINSON^S DISEASE
     Dosage: 150 MG OF LEVODOPA, 37.5 MG OF CARBIDOPA AND 200 MG OF ENTACAPONE/ TABLET
     Route: 048
  5. DUODOPA [Suspect]
     Active Substance: CARBIDOPA\LEVODOPA
  6. ASA PROTECT PHARMAVIT [Concomitant]
     Indication: PROPHYLAXIS
     Route: 048
     Dates: start: 202008

REACTIONS (9)
  - Dehydration [Recovered/Resolved]
  - Fluid intake reduced [Unknown]
  - Fall [Recovered/Resolved]
  - Hypophagia [Unknown]
  - Effusion [Recovered/Resolved]
  - Cardiomegaly [Not Recovered/Not Resolved]
  - Head injury [Recovered/Resolved]
  - General physical health deterioration [Recovering/Resolving]
  - Sputum purulent [Recovered/Resolved]

NARRATIVE: CASE EVENT DATE: 202008
